FAERS Safety Report 12084705 (Version 1)
Quarter: 2016Q1

REPORT INFORMATION
  Report Type: Spontaneous
  Country: US (occurrence: US)
  Receive Date: 20160217
  Receipt Date: 20160217
  Transmission Date: 20160526
  Serious: No
  Sender: FDA-Public Use
  Company Number: GXBR2015US001513

PATIENT
  Age: 35 Year
  Sex: Female
  Weight: 75.74 kg

DRUGS (1)
  1. FLUOCINONIDE. [Suspect]
     Active Substance: FLUOCINONIDE
     Indication: DERMATOMYOSITIS
     Dosage: 1 DF, ONCE/SINGLE
     Route: 061
     Dates: start: 20150603, end: 20150603

REACTIONS (1)
  - Burning sensation [Recovered/Resolved]

NARRATIVE: CASE EVENT DATE: 20150603
